FAERS Safety Report 10057240 (Version 2)
Quarter: 2014Q2

REPORT INFORMATION
  Report Type: Spontaneous
  Country: JP (occurrence: JP)
  Receive Date: 20140403
  Receipt Date: 20140403
  Transmission Date: 20141212
  Serious: Yes (Hospitalization)
  Sender: FDA-Public Use
  Company Number: JP-TAKEDA-THQ2010A03103

PATIENT
  Sex: 0

DRUGS (45)
  1. TAKEPRON [Suspect]
     Indication: PRODUCT USED FOR UNKNOWN INDICATION
     Dosage: 7.5 MG, BID
     Route: 048
     Dates: start: 20100628, end: 20100728
  2. SPIRONOLACTONE [Suspect]
     Indication: DIURETIC THERAPY
     Dosage: 40 MG/DAY (MIN) - 100 MG/DAY (MAX)
     Route: 048
     Dates: start: 20100626, end: 20100706
  3. FAMOTIDINE [Suspect]
     Indication: PRODUCT USED FOR UNKNOWN INDICATION
     Dosage: 15 MG, QD
     Route: 048
     Dates: start: 20100626, end: 20100715
  4. FAMOTIDINE [Suspect]
     Dosage: 8 MG, BID
     Route: 041
     Dates: start: 20100617, end: 20100626
  5. PHENOBARBITAL [Suspect]
     Indication: PRODUCT USED FOR UNKNOWN INDICATION
     Dosage: 50 MG, BID
     Route: 048
     Dates: start: 20100622, end: 20100709
  6. CERCINE [Suspect]
     Indication: PRODUCT USED FOR UNKNOWN INDICATION
     Dosage: 5 MG, UNK
     Route: 048
     Dates: start: 20100622, end: 20100701
  7. CERCINE [Suspect]
     Dosage: 4 ML, UNK
     Route: 048
     Dates: start: 20100702, end: 20100722
  8. AMPICILLIN [Suspect]
     Indication: PRODUCT USED FOR UNKNOWN INDICATION
     Dosage: 375 MG, QD
     Route: 065
     Dates: start: 20100715, end: 20100716
  9. BIOFERMIN R [Suspect]
     Indication: PRODUCT USED FOR UNKNOWN INDICATION
     Dosage: 1 G, UNK
     Route: 048
     Dates: start: 20100711, end: 20100718
  10. RISPERIDONE [Suspect]
     Indication: PRODUCT USED FOR UNKNOWN INDICATION
     Dosage: 0.3 ML, QD
     Route: 048
     Dates: start: 20100702, end: 20100714
  11. PARACETAMOL [Suspect]
     Indication: PYREXIA
     Dosage: 300 MG, QD
     Route: 048
     Dates: start: 20100627, end: 20100716
  12. MORPHINE HYDROCHLORIDE [Suspect]
     Indication: PRODUCT USED FOR UNKNOWN INDICATION
     Dosage: 2 MG/KG, QD
     Route: 041
     Dates: start: 20100621, end: 20100709
  13. SODIUM PICOSULFATE [Suspect]
     Indication: PRODUCT USED FOR UNKNOWN INDICATION
     Dosage: 10 ML, QD
     Route: 048
     Dates: start: 20100620, end: 20100620
  14. DEXAMETHASONE [Suspect]
     Indication: PRODUCT USED FOR UNKNOWN INDICATION
     Dosage: 2 MG, UNK
     Route: 041
     Dates: start: 20100617, end: 20100622
  15. ATROPINE [Suspect]
     Indication: PRODUCT USED FOR UNKNOWN INDICATION
     Dosage: 0.5 MG, QD
     Route: 041
     Dates: start: 20100617, end: 20100622
  16. EPINEPHRINE [Suspect]
     Indication: PRODUCT USED FOR UNKNOWN INDICATION
     Dosage: 10 MG, QD
     Route: 041
     Dates: start: 20100621, end: 20100621
  17. FENTANYL [Suspect]
     Indication: PRODUCT USED FOR UNKNOWN INDICATION
     Dosage: UNK
     Route: 041
     Dates: start: 20100621, end: 20100708
  18. PARACETAMOL [Suspect]
     Indication: PRODUCT USED FOR UNKNOWN INDICATION
     Dosage: UNK
     Route: 054
     Dates: start: 20100630, end: 20100716
  19. ATARAX-P [Suspect]
     Indication: DIURETIC THERAPY
     Dosage: 25 MG, QD
     Route: 041
     Dates: start: 20100709, end: 20100709
  20. CEFAZOLIN SODIUM [Suspect]
     Indication: PRODUCT USED FOR UNKNOWN INDICATION
     Dosage: 500 MG, BID
     Route: 041
     Dates: start: 20100622, end: 20100624
  21. DORMICUM [Suspect]
     Indication: PRODUCT USED FOR UNKNOWN INDICATION
     Dosage: 10 MG, QD
     Route: 041
     Dates: start: 20100617, end: 20100709
  22. DORMICUM [Suspect]
     Dosage: 10 MG, UID/QD
     Route: 041
     Dates: start: 20100621, end: 20100621
  23. ROCEPHIN [Suspect]
     Indication: INFECTION
     Dosage: 200 MG, QD
     Route: 041
     Dates: start: 20100630, end: 20100707
  24. CLINDAMYCIN PHOSPHATE [Suspect]
     Indication: PRODUCT USED FOR UNKNOWN INDICATION
     Dosage: 100 MG, TID
     Route: 041
     Dates: start: 20100608, end: 20100710
  25. PENMALIN [Suspect]
     Indication: PRODUCT USED FOR UNKNOWN INDICATION
     Dosage: 375 MG, QID
     Route: 041
     Dates: start: 20100715, end: 20100716
  26. BIOFERMIN [Suspect]
     Indication: PRODUCT USED FOR UNKNOWN INDICATION
     Dosage: 1 G, UNK
     Route: 048
     Dates: start: 20100711, end: 20100718
  27. LASIX [Suspect]
     Indication: PRODUCT USED FOR UNKNOWN INDICATION
     Dosage: 2.5 MG, QID
     Route: 048
     Dates: start: 20100626, end: 20100706
  28. LACTOBACILLUS CASEI [Suspect]
     Indication: PRODUCT USED FOR UNKNOWN INDICATION
     Dosage: 500 MG, UNK
     Route: 048
     Dates: start: 20100702, end: 20100709
  29. DEPAS [Suspect]
     Indication: PRODUCT USED FOR UNKNOWN INDICATION
     Dosage: 1 DF, QD
     Route: 048
     Dates: start: 20100701, end: 20100701
  30. TRICLORYL [Suspect]
     Indication: PRODUCT USED FOR UNKNOWN INDICATION
     Dosage: 20 ML, QD
     Route: 048
     Dates: start: 20100628, end: 20100705
  31. OMEPRAL [Suspect]
     Indication: PRODUCT USED FOR UNKNOWN INDICATION
     Dosage: 7.5 MG, BID
     Route: 041
     Dates: start: 20100716, end: 20100721
  32. HEPARIN ^NOVO^ [Suspect]
     Indication: PRODUCT USED FOR UNKNOWN INDICATION
     Dosage: 5 IU/KG, QD
     Route: 041
     Dates: start: 20100808, end: 20100812
  33. HEPARIN SODIUM [Suspect]
     Indication: PRODUCT USED FOR UNKNOWN INDICATION
     Dosage: 2 DF, QD
     Route: 041
     Dates: start: 20100617
  34. GLYCEOL [Suspect]
     Indication: PRODUCT USED FOR UNKNOWN INDICATION
     Dosage: 200 ML, UNK
     Route: 041
     Dates: start: 20100617, end: 20100618
  35. CALCICOL [Suspect]
     Indication: PRODUCT USED FOR UNKNOWN INDICATION
     Dosage: 10 ML, QD
     Route: 041
     Dates: start: 20100621, end: 20100621
  36. ULTIVA [Suspect]
     Indication: PRODUCT USED FOR UNKNOWN INDICATION
     Dosage: UNK
     Route: 041
     Dates: start: 20100621, end: 20100708
  37. NICARPINE [Suspect]
     Indication: PRODUCT USED FOR UNKNOWN INDICATION
     Dosage: UNK
     Route: 041
  38. DEXMEDETOMIDINE HYDROCHLORIDE [Suspect]
     Indication: PRODUCT USED FOR UNKNOWN INDICATION
     Dosage: UNK
     Route: 041
     Dates: start: 20100704, end: 20100705
  39. ROCURONIUM BROMIDE [Suspect]
     Indication: PRODUCT USED FOR UNKNOWN INDICATION
     Dosage: 50 MG, QD
     Route: 041
     Dates: start: 20100617, end: 20100706
  40. XYLOCAINE [Suspect]
     Indication: PRODUCT USED FOR UNKNOWN INDICATION
     Dosage: 10 ML, QD
     Route: 041
     Dates: start: 20100621, end: 20100709
  41. PANTHENOL [Suspect]
     Indication: PRODUCT USED FOR UNKNOWN INDICATION
     Dosage: 25 MG, BID
     Route: 041
     Dates: start: 20100604, end: 20100705
  42. ROPION [Suspect]
     Indication: PRODUCT USED FOR UNKNOWN INDICATION
     Dosage: 3.5 ML, QD
     Route: 041
     Dates: start: 20100709, end: 20100709
  43. TARIVID OPHTHALMIC [Suspect]
     Indication: PRODUCT USED FOR UNKNOWN INDICATION
     Dosage: UNK
     Route: 047
     Dates: start: 20100728, end: 20100729
  44. HYALEIN [Suspect]
     Indication: PRODUCT USED FOR UNKNOWN INDICATION
     Dosage: UNK
     Route: 047
     Dates: start: 20100723, end: 20100821
  45. GLYCERIN [Suspect]
     Indication: CONSTIPATION
     Dosage: UNK
     Route: 054
     Dates: start: 20100627

REACTIONS (1)
  - Drug reaction with eosinophilia and systemic symptoms [Recovering/Resolving]
